FAERS Safety Report 5287092-5 (Version None)
Quarter: 2007Q2

REPORT INFORMATION
  Report Type: 
  Country: None (occurrence: None)
  Receive Date: 20070404
  Receipt Date: 20070327
  Transmission Date: 20071010
  Serious: Yes (Hospitalization)
  Sender: FDA-Public Use
  Company Number: JP-PFIZER INC-2006146222

PATIENT
  Sex: Female
  Weight: 67 kg

DRUGS (10)
  1. SOLANAX [Suspect]
     Indication: PANIC ATTACK
     Dosage: DAILY DOSE:.4MG
     Route: 048
     Dates: start: 20061125, end: 20061125
  2. DEPAS [Suspect]
     Indication: PANIC ATTACK
     Dosage: DAILY DOSE:.5MG
     Route: 048
  3. TAMBOCOR [Concomitant]
     Route: 048
     Dates: start: 20061026, end: 20061115
  4. NU LOTAN [Concomitant]
     Route: 048
  5. ASPIRIN [Concomitant]
     Route: 048
  6. TAKEPRON [Concomitant]
     Route: 048
  7. BIOFERMIN [Concomitant]
     Route: 048
  8. DAI-KENCHU-TO [Concomitant]
     Route: 048
  9. KARY UNI [Concomitant]
     Route: 031
  10. SANCOBA [Concomitant]
     Route: 031

REACTIONS (3)
  - BRADYCARDIA [None]
  - ELECTROCARDIOGRAM QT PROLONGED [None]
  - VENTRICULAR TACHYCARDIA [None]
